FAERS Safety Report 20641885 (Version 3)
Quarter: 2024Q4

REPORT INFORMATION
  Report Type: Spontaneous
  Country: US (occurrence: US)
  Receive Date: 20220328
  Receipt Date: 20241112
  Transmission Date: 20250115
  Serious: Yes (Other)
  Sender: BRISTOL-MYERS SQUIBB COMPANY
  Company Number: US-BRISTOL-MYERS SQUIBB COMPANY-2022-010949

PATIENT
  Age: 75 Year
  Sex: Male
  Weight: 73.48 kg

DRUGS (10)
  1. THALIDOMIDE [Suspect]
     Active Substance: THALIDOMIDE
     Indication: Arteriovenous malformation
     Route: 048
     Dates: start: 201801
  2. THALIDOMIDE [Suspect]
     Active Substance: THALIDOMIDE
     Indication: Von Willebrand^s disease
     Route: 048
     Dates: start: 20180216
  3. THALIDOMIDE [Suspect]
     Active Substance: THALIDOMIDE
     Indication: Hypergammaglobulinaemia benign monoclonal
     Route: 048
     Dates: start: 201811
  4. THALIDOMIDE [Suspect]
     Active Substance: THALIDOMIDE
     Route: 048
  5. THALIDOMIDE [Suspect]
     Active Substance: THALIDOMIDE
     Route: 048
  6. WELLBUTRIN [Concomitant]
     Active Substance: BUPROPION HYDROCHLORIDE
     Indication: Product used for unknown indication
  7. XANAX [Concomitant]
     Active Substance: ALPRAZOLAM
     Indication: Product used for unknown indication
  8. LEVOCETIRIZINE [Concomitant]
     Active Substance: LEVOCETIRIZINE
     Indication: Product used for unknown indication
  9. CHOLECALCIFEROL [Concomitant]
     Active Substance: CHOLECALCIFEROL
     Indication: Product used for unknown indication
  10. VITAMIN B COMPLEX [CYANOCOBALAMIN] [Concomitant]
     Indication: Product used for unknown indication

REACTIONS (3)
  - Haemorrhage [Unknown]
  - Neuropathy peripheral [Not Recovered/Not Resolved]
  - Intentional product use issue [Unknown]

NARRATIVE: CASE EVENT DATE: 20220301
